FAERS Safety Report 14350150 (Version 1)
Quarter: 2018Q1

REPORT INFORMATION
  Report Type: Spontaneous
  Country: US (occurrence: US)
  Receive Date: 20180103
  Receipt Date: 20180103
  Transmission Date: 20180509
  Serious: Yes (Hospitalization)
  Sender: FDA-Public Use
  Company Number: None

PATIENT
  Age: 28 Year
  Sex: Female
  Weight: 64.8 kg

DRUGS (1)
  1. VIVITROL [Suspect]
     Active Substance: NALTREXONE
     Dosage: ?          OTHER FREQUENCY:ONCE EVERY 4 WEEKS;?
     Route: 030
     Dates: start: 20171219

REACTIONS (6)
  - Injection site swelling [None]
  - Feeling hot [None]
  - Injection site pain [None]
  - Pain in extremity [None]
  - Back pain [None]
  - Injection site mass [None]

NARRATIVE: CASE EVENT DATE: 20180102
